FAERS Safety Report 5415583-2 (Version None)
Quarter: 2007Q3

REPORT INFORMATION
  Report Type: 
  Country: None (occurrence: None)
  Receive Date: 20070815
  Receipt Date: 20070621
  Transmission Date: 20080115
  Serious: Yes (Hospitalization, Other)
  Sender: FDA-Public Use
  Company Number: US-PURDUE-USA_2007_0028017

PATIENT
  Sex: Male
  Weight: 107 kg

DRUGS (5)
  1. OXYCONTIN [Suspect]
     Indication: SPINAL DISORDER
     Dosage: 20 MG, Q6H
     Dates: start: 20030101, end: 20051202
  2. LORCET-HD [Concomitant]
     Dosage: 10 MG, UNK
  3. PREDNISONE TAB [Concomitant]
     Dosage: 10 MG, UNK
  4. PEPCID [Concomitant]
     Dosage: 20 MG, UNK
  5. VYTORIN [Concomitant]
     Dosage: 10 MG, UNK

REACTIONS (4)
  - DRUG DEPENDENCE [None]
  - NAUSEA [None]
  - TRANSIENT ISCHAEMIC ATTACK [None]
  - TREMOR [None]
